FAERS Safety Report 7613042-X (Version None)
Quarter: 2011Q3

REPORT INFORMATION
  Report Type: 
  Country: None (occurrence: None)
  Receive Date: 20110713
  Receipt Date: 20110504
  Transmission Date: 20111222
  Serious: No
  Sender: FDA-Public Use
  Company Number: US-005313

PATIENT
  Sex: Male

DRUGS (2)
  1. DEGARELIX (240 MG, 80 MG) [Suspect]
     Indication: PROSTATE CANCER
     Dosage: (240 MG 1X SUBCUTANEOUS), (80 MG 1X.MONTH SUBCUTANEOUS)
     Route: 058
     Dates: start: 20100501, end: 20100501
  2. DEGARELIX (240 MG, 80 MG) [Suspect]
     Indication: PROSTATE CANCER
     Dosage: (240 MG 1X SUBCUTANEOUS), (80 MG 1X.MONTH SUBCUTANEOUS)
     Route: 058
     Dates: start: 20100601

REACTIONS (3)
  - BRONCHITIS [None]
  - OSTEOPOROSIS [None]
  - MYALGIA [None]
